FAERS Safety Report 7077078-2 (Version None)
Quarter: 2010Q4

REPORT INFORMATION
  Report Type: 
  Country: None (occurrence: None)
  Receive Date: 20101101
  Receipt Date: 20101021
  Transmission Date: 20110411
  Serious: Yes (Other)
  Sender: FDA-Public Use
  Company Number: FR-NOVOPROD-316217

PATIENT
  Age: 66 Year
  Sex: Female
  Weight: 84 kg

DRUGS (10)
  1. VICTOZA [Suspect]
     Indication: TYPE 2 DIABETES MELLITUS
     Dosage: 0.6 MG, QD
     Route: 058
     Dates: start: 20100907, end: 20100101
  2. VICTOZA [Suspect]
     Dosage: 1.2 MG, QD
     Route: 058
     Dates: start: 20100924, end: 20100101
  3. GLYBURIDE [Concomitant]
     Indication: TYPE 2 DIABETES MELLITUS
     Dosage: 5 MG, BID
     Route: 048
     Dates: start: 20100907
  4. CRESTOR [Concomitant]
     Indication: HYPERCHOLESTEROLAEMIA
     Dosage: 5 MG, QD
     Route: 048
  5. ISOPTIN [Concomitant]
     Dosage: 120 MG, QD
     Route: 048
     Dates: start: 20030101
  6. RYTHMOL [Concomitant]
     Dosage: 300 MG, BID
     Route: 048
     Dates: start: 20030101
  7. TRIAMTERENE AND HYDROCHLOROTHIAZIDE [Concomitant]
     Dosage: 40 MG, QD
     Route: 048
     Dates: start: 20030101
  8. KARDEGIC                           /00002703/ [Concomitant]
     Dosage: 75 MG, QD
     Route: 048
  9. ISKEDYL [Concomitant]
  10. STAGID [Concomitant]
     Indication: TYPE 2 DIABETES MELLITUS
     Dosage: 700 MG, TID
     Route: 048
     Dates: start: 20030101

REACTIONS (1)
  - DIPLOPIA [None]
